FAERS Safety Report 5724623-2 (Version None)
Quarter: 2008Q2

REPORT INFORMATION
  Report Type: 
  Country: None (occurrence: None)
  Receive Date: 20080430
  Receipt Date: 20080430
  Transmission Date: 20081010
  Serious: No
  Sender: FDA-Public Use
  Company Number: None

PATIENT
  Age: 31 Year
  Sex: Female
  Weight: 62 kg

DRUGS (8)
  1. PHENERGAN [Suspect]
     Indication: VOMITING
     Dosage: 25MG IVPB X 1
     Route: 042
     Dates: start: 20071126
  2. OMEPRAZOLE [Concomitant]
  3. VALACYCLOVIR [Concomitant]
  4. FLUCONAZOLE [Concomitant]
  5. CYCLOSPORINE [Concomitant]
  6. MAGNESIUM OXIDE [Concomitant]
  7. CEFTAZIDIME [Concomitant]
  8. VANCOMYCIN [Concomitant]

REACTIONS (3)
  - ANXIETY [None]
  - HALLUCINATION [None]
  - NAUSEA [None]
